FAERS Safety Report 7982495-X (Version None)
Quarter: 2011Q4

REPORT INFORMATION
  Report Type: 
  Country: None (occurrence: None)
  Receive Date: 20111215
  Receipt Date: 20111207
  Transmission Date: 20120403
  Serious: Yes (Other)
  Sender: FDA-Public Use
  Company Number: US-AMGEN-USASP2011065127

PATIENT
  Sex: Male

DRUGS (6)
  1. ENBREL [Suspect]
     Indication: PSORIASIS
     Dosage: 50 MG, QWK
     Dates: start: 20100601
  2. LEVOTHYROXINE SODIUM [Concomitant]
     Dosage: 1 MUG, UNK
  3. RAPTIVA [Concomitant]
     Dosage: UNK
  4. LISINOPRIL [Concomitant]
     Dosage: 1 MG, UNK
  5. ATENOLOL [Concomitant]
     Dosage: 1 MG, UNK
  6. CRESTOR [Concomitant]
     Dosage: 1 MG, UNK

REACTIONS (1)
  - PROSTATE CANCER [None]
